FAERS Safety Report 5709782-X (Version None)
Quarter: 2008Q2

REPORT INFORMATION
  Report Type: 
  Country: None (occurrence: None)
  Receive Date: 20080418
  Receipt Date: 20080403
  Transmission Date: 20081010
  Serious: Yes (Other)
  Sender: FDA-Public Use
  Company Number: GB-BRISTOL-MYERS SQUIBB COMPANY-13841176

PATIENT
  Sex: Male

DRUGS (5)
  1. SUSTIVA [Suspect]
     Indication: HIV INFECTION
     Route: 048
     Dates: start: 20040401, end: 20070401
  2. REYATAZ [Suspect]
  3. COMBIVIR [Suspect]
     Dosage: ZIDOVUDINE 300MG + LAMIVUDINE 150MG
     Dates: start: 20040401
  4. TRUVADA [Suspect]
     Dosage: TENOFOVIR DISOPROXIL 245MG + EMTRICITABINE 200MG IN OCT-2005.
     Dates: start: 20050701
  5. RITONAVIR [Suspect]

REACTIONS (2)
  - HEPATITIS [None]
  - SCHISTOSOMIASIS [None]
